FAERS Safety Report 9422073 (Version 1)
Quarter: 2013Q3

REPORT INFORMATION
  Report Type: Spontaneous
  Country: US (occurrence: US)
  Receive Date: 20130726
  Receipt Date: 20130726
  Transmission Date: 20140515
  Serious: No
  Sender: FDA-Public Use
  Company Number: US-MYLANLABS-2012S1025087

PATIENT
  Sex: Female

DRUGS (2)
  1. PAROXETINE HYDROCHLORIDE EXTENDED-RELEASE TABLETS [Suspect]
     Indication: DEPRESSION
     Route: 048
     Dates: start: 201207, end: 201211
  2. PAROXETINE HYDROCHLORIDE EXTENDED-RELEASE TABLETS [Suspect]
     Indication: DEPRESSION
     Route: 048
     Dates: start: 201211

REACTIONS (5)
  - Dizziness [Not Recovered/Not Resolved]
  - Disturbance in attention [Not Recovered/Not Resolved]
  - Balance disorder [Not Recovered/Not Resolved]
  - Increased appetite [Not Recovered/Not Resolved]
  - Constipation [Not Recovered/Not Resolved]
